FAERS Safety Report 25384028 (Version 2)
Quarter: 2025Q4

REPORT INFORMATION
  Report Type: Spontaneous
  Country: SG (occurrence: SG)
  Receive Date: 20250602
  Receipt Date: 20251119
  Transmission Date: 20260118
  Serious: Yes (Death, Other)
  Sender: ROCHE
  Company Number: SG-ROCHE-10000297278

PATIENT
  Age: 62 Year
  Sex: Male
  Weight: 51 kg

DRUGS (1)
  1. TECENTRIQ [Suspect]
     Active Substance: ATEZOLIZUMAB
     Indication: Lung neoplasm malignant
     Route: 065

REACTIONS (2)
  - Neoplasm malignant [Fatal]
  - Metastases to central nervous system [Unknown]
